FAERS Safety Report 8720508 (Version 2)
Quarter: 2012Q4

REPORT INFORMATION
  Report Type: 
  Country: FR (occurrence: FR)
  Receive Date: 20120813
  Receipt Date: 20120829
  Transmission Date: 20130627
  Serious: Yes (Hospitalization)
  Sender: FDA-Public Use
  Company Number: FR-ROCHE-1097983

PATIENT
  Age: 60 Year
  Sex: Male

DRUGS (4)
  1. VALIUM [Suspect]
     Indication: DEPRESSION
     Route: 048
     Dates: end: 20120712
  2. VALIUM [Suspect]
     Dosage: 0.750 mg/l
     Dates: start: 20120714
  3. VALIUM [Suspect]
     Dosage: 0.420 mg/l
     Dates: start: 20120717
  4. DEROXAT [Concomitant]

REACTIONS (1)
  - Coma [Recovered/Resolved]
